FAERS Safety Report 18405788 (Version 1)
Quarter: 2020Q4

REPORT INFORMATION
  Report Type: Spontaneous
  Country: US (occurrence: US)
  Receive Date: 20201020
  Receipt Date: 20201020
  Transmission Date: 20210114
  Serious: No
  Sender: FDA-Public Use
  Company Number: US-CELGENEUS-USA-20201002729

PATIENT
  Sex: Female

DRUGS (1)
  1. REVLIMID [Suspect]
     Active Substance: LENALIDOMIDE
     Indication: PLASMA CELL MYELOMA
     Dosage: 10 MILLIGRAM
     Route: 048
     Dates: start: 202009

REACTIONS (10)
  - Gait inability [Unknown]
  - Miosis [Unknown]
  - Vomiting [Unknown]
  - Dizziness [Unknown]
  - Rash [Unknown]
  - Muscle spasms [Unknown]
  - Tremor [Unknown]
  - Unevaluable event [Unknown]
  - Diarrhoea [Unknown]
  - Lip blister [Unknown]

NARRATIVE: CASE EVENT DATE: 2020
